FAERS Safety Report 19126784 (Version 3)
Quarter: 2021Q2

REPORT INFORMATION
  Report Type: Spontaneous
  Country: IT (occurrence: IT)
  Receive Date: 20210413
  Receipt Date: 20210623
  Transmission Date: 20210717
  Serious: Yes (Hospitalization, Other)
  Sender: FDA-Public Use
  Company Number: IT-ACCORD-222405

PATIENT
  Age: 68 Year
  Sex: Male

DRUGS (9)
  1. CANRENOIC ACID [Concomitant]
     Active Substance: CANRENOIC ACID
     Dates: start: 201704
  2. LINAGLIPTIN [Concomitant]
     Active Substance: LINAGLIPTIN
     Dosage: SAME DOSE TILL JAN?2020
     Dates: start: 201908
  3. FUROSEMIDE. [Suspect]
     Active Substance: FUROSEMIDE
     Indication: POLYURIA
     Dosage: REDUCED TO 50 MG FROM MAY 2019? AUGUST 2019
     Dates: start: 201704
  4. SACUBITRIL/VALSARTAN [Suspect]
     Active Substance: SACUBITRIL\VALSARTAN
     Indication: CARDIAC FAILURE
     Dosage: 24/26 MG B.I.D TITRATED TO 97/103
     Dates: start: 201905, end: 201907
  5. BISOPROLOL [Suspect]
     Active Substance: BISOPROLOL
     Indication: PRODUCT USED FOR UNKNOWN INDICATION
     Dates: start: 201704
  6. EMPAGLIFLOZIN [Suspect]
     Active Substance: EMPAGLIFLOZIN
     Indication: TYPE 2 DIABETES MELLITUS
     Dates: start: 201905, end: 201907
  7. FUROSEMIDE. [Suspect]
     Active Substance: FUROSEMIDE
     Indication: HYPERTENSION
     Dates: start: 201908, end: 202001
  8. RAMIPRIL. [Concomitant]
     Active Substance: RAMIPRIL
     Dates: start: 201704
  9. METFORMIN [Concomitant]
     Active Substance: METFORMIN HYDROCHLORIDE
     Indication: TYPE 2 DIABETES MELLITUS
     Dates: start: 201704

REACTIONS (4)
  - Hypovolaemia [Recovered/Resolved]
  - Weight decreased [Unknown]
  - Acute kidney injury [Recovered/Resolved]
  - Metabolic acidosis [Recovered/Resolved]

NARRATIVE: CASE EVENT DATE: 2019
